FAERS Safety Report 6725181-6 (Version None)
Quarter: 2010Q2

REPORT INFORMATION
  Report Type: 
  Country: None (occurrence: None)
  Receive Date: 20100514
  Receipt Date: 20100503
  Transmission Date: 20101027
  Serious: Yes (Other)
  Sender: FDA-Public Use
  Company Number: PHHY2010BR29102

PATIENT
  Sex: Female

DRUGS (3)
  1. EXELON [Suspect]
     Route: 062
  2. EXELON [Suspect]
     Dosage: 3 MG, UNK
  3. HYDERGINE [Suspect]

REACTIONS (3)
  - DIZZINESS [None]
  - HEART RATE IRREGULAR [None]
  - VISUAL IMPAIRMENT [None]
